FAERS Safety Report 25488178 (Version 3)
Quarter: 2025Q3

REPORT INFORMATION
  Report Type: Spontaneous
  Country: UA (occurrence: UA)
  Receive Date: 20250627
  Receipt Date: 20250711
  Transmission Date: 20251020
  Serious: Yes (Death)
  Sender: ROCHE
  Company Number: UA-BoehringerIngelheim-2025-BI-078485

PATIENT
  Age: 77 Year
  Sex: Male
  Weight: 72 kg

DRUGS (3)
  1. ALTEPLASE [Suspect]
     Active Substance: ALTEPLASE
     Indication: Ischaemic stroke
     Route: 065
     Dates: start: 20250603, end: 20250603
  2. ENALAPRIL [Concomitant]
     Active Substance: ENALAPRIL
  3. MAGNICOR [Concomitant]

REACTIONS (8)
  - Condition aggravated [Fatal]
  - Asphyxia [Fatal]
  - Anaphylactic shock [Fatal]
  - Cerebral infarction [Fatal]
  - Angioedema [Fatal]
  - Aortic arteriosclerosis [Fatal]
  - Pulmonary oedema [Fatal]
  - Brain oedema [Fatal]

NARRATIVE: CASE EVENT DATE: 20250604
